FAERS Safety Report 8188709-8 (Version None)
Quarter: 2012Q1

REPORT INFORMATION
  Report Type: 
  Country: None (occurrence: None)
  Receive Date: 20120306
  Receipt Date: 20120229
  Transmission Date: 20120608
  Serious: Yes (Hospitalization)
  Sender: FDA-Public Use
  Company Number: US-ALEXION PHARMACEUTICALS INC.-A201200373

PATIENT
  Sex: Female

DRUGS (7)
  1. XANAX [Concomitant]
     Indication: ANXIETY
     Dosage: 0.25 MG, Q4HR
     Route: 048
  2. SOLIRIS [Suspect]
     Dosage: 900 MG, Q2W
     Route: 042
  3. SOLIRIS [Suspect]
     Indication: PAROXYSMAL NOCTURNAL HAEMOGLOBINURIA
     Dosage: UNK
     Route: 042
     Dates: start: 20070607
  4. TOPIRAMATE [Concomitant]
     Indication: HEADACHE
     Dosage: 50 MG, BID
     Route: 048
  5. TORADOL [Concomitant]
     Indication: PAIN
     Dosage: 10 MG, Q 4-6 HR, PRN
     Route: 048
  6. COUMADIN [Concomitant]
     Indication: THROMBOSIS PROPHYLAXIS
     Dosage: 10 MG, QD
     Route: 048
     Dates: start: 20120131
  7. FOLIC ACID [Concomitant]
     Dosage: 1 MG, QD
     Route: 048

REACTIONS (8)
  - PAROXYSMAL NOCTURNAL HAEMOGLOBINURIA [None]
  - CYST [None]
  - BLOOD LACTATE DEHYDROGENASE INCREASED [None]
  - HEADACHE [None]
  - CONDITION AGGRAVATED [None]
  - RETICULOCYTE COUNT ABNORMAL [None]
  - PANCYTOPENIA [None]
  - HAPTOGLOBIN ABNORMAL [None]
